FAERS Safety Report 19673153 (Version 1)
Quarter: 2021Q3

REPORT INFORMATION
  Report Type: Spontaneous
  Country: US (occurrence: US)
  Receive Date: 20210809
  Receipt Date: 20210809
  Transmission Date: 20211014
  Serious: Yes (Other)
  Sender: FDA-Public Use
  Company Number: US-ACCORD-153712

PATIENT
  Age: 53 Year
  Sex: Female
  Weight: 61.23 kg

DRUGS (16)
  1. PROCHLORPERAZINE. [Concomitant]
     Active Substance: PROCHLORPERAZINE
     Dosage: STRENGTH: 10 MG?1 TABLET Q 4 HOURS PRN
     Route: 048
  2. DEXAMETHASONE. [Concomitant]
     Active Substance: DEXAMETHASONE
     Dosage: OVER 16 MINUTES IN NS 100 ML AT THE RATE?OF 398 ML/HR
     Route: 042
  3. DOCETAXEL ACCORD [Suspect]
     Active Substance: DOCETAXEL
     Indication: BREAST CANCER
     Dosage: NUMBER OF CYCLES: 06?OVER 1 HOUR IN NS (NORMAL SALINE) 250 ML AT THE RATE OF 250 ML/HR
     Route: 042
     Dates: start: 20160414, end: 20160728
  4. PERTUZUMAB. [Suspect]
     Active Substance: PERTUZUMAB
     Indication: BREAST CANCER
     Dosage: NUMBER OF CYCLES: 06?OVER 1 HOUR IN NS 250 ML AT THE RATE OF 278 ML/HR
     Route: 042
     Dates: start: 20160414, end: 20160728
  5. DIPHENHYDRAMINE. [Concomitant]
     Active Substance: DIPHENHYDRAMINE
     Dosage: OVER 16 MINUTES IN NS 100 ML AT THE RATE OF 377 ML/HR
     Route: 042
  6. EMLA [Concomitant]
     Active Substance: LIDOCAINE\PRILOCAINE
     Dosage: STRENGTH; 2.5%?TAKE AS DIRECTED
     Route: 061
  7. ZARXIO [Concomitant]
     Active Substance: FILGRASTIM-SNDZ
     Dosage: 1 SYRINGE (OF 300 MCG /0.5 ML) DAILY
     Route: 058
  8. LAMOTRIGINE. [Concomitant]
     Active Substance: LAMOTRIGINE
     Dosage: STRENGTH: 100 MG?1 TABLET DAILY
     Route: 048
  9. LORATADINE. [Concomitant]
     Active Substance: LORATADINE
     Dosage: STRENGTH: 10 MG?1 CAPSULE DAILY
     Route: 048
  10. TRASTUZUMAB. [Suspect]
     Active Substance: TRASTUZUMAB
     Indication: BREAST CANCER
     Dosage: COMBINED WITH OTHER DRUGS FOR 6 CYCLE FOLLOWED BY TRASTUZUMAB EVERY 3 WEEKS TO COMPLETE 1 YEAR
     Route: 042
     Dates: start: 20160414
  11. PALONOSETRON. [Concomitant]
     Active Substance: PALONOSETRON HYDROCHLORIDE
     Dosage: OVER 16 MINUTES IN NS 100 ML AT THE RATE OF 398 ML/HR
     Route: 042
  12. ZOFRAN [Concomitant]
     Active Substance: ONDANSETRON HYDROCHLORIDE
     Dosage: STRENGTH: 8 MG?1 TABLET Q 12 HOURS PRN
     Route: 048
  13. OMEPRAZOLE. [Concomitant]
     Active Substance: OMEPRAZOLE
     Dosage: STRENGTH: 20 MG?1 CAPSULE DELAYED RELEASE DAILY
     Route: 048
  14. FLUOXETINE [Concomitant]
     Active Substance: FLUOXETINE HYDROCHLORIDE
     Dosage: STRENGTH: 20 MG
     Route: 048
     Dates: start: 20110430
  15. DEXAMETHASONE. [Concomitant]
     Active Substance: DEXAMETHASONE
     Dosage: STRENGTH: 4 MG
     Route: 048
  16. PARAPLATIN [Suspect]
     Active Substance: CARBOPLATIN
     Indication: BREAST CANCER
     Dosage: NUMBER OF CYCLES: 06?OVER 30 MINUTES IN NS 250 ML AT THE RATE OF 500 ML/HR
     Route: 042
     Dates: start: 20160414, end: 20160728

REACTIONS (1)
  - Alopecia [Not Recovered/Not Resolved]

NARRATIVE: CASE EVENT DATE: 20170128
